FAERS Safety Report 23451018 (Version 2)
Quarter: 2024Q1

REPORT INFORMATION
  Report Type: Spontaneous
  Country: FR (occurrence: FR)
  Receive Date: 20240129
  Receipt Date: 20240131
  Transmission Date: 20240410
  Serious: Yes (Death, Life-Threatening, Hospitalization, Other)
  Sender: FDA-Public Use
  Company Number: None

PATIENT
  Age: 73 Year
  Sex: Male
  Weight: 98.5 kg

DRUGS (3)
  1. IFOSFAMIDE [Suspect]
     Active Substance: IFOSFAMIDE
     Indication: Non-Hodgkin^s lymphoma
     Dosage: 11200 MG, ONCE TOTAL
     Route: 042
     Dates: start: 20231210, end: 20231210
  2. CARBOPLATIN [Concomitant]
     Active Substance: CARBOPLATIN
     Indication: Non-Hodgkin^s lymphoma
     Dosage: 486.25 MG, ONCE TOTAL
     Route: 042
     Dates: start: 20231210, end: 20231210
  3. ETOPOSIDE [Concomitant]
     Active Substance: ETOPOSIDE
     Indication: Non-Hodgkin^s lymphoma
     Dosage: 224 MG, ONCE A DAY
     Route: 042
     Dates: start: 20231209, end: 20231210

REACTIONS (4)
  - Neurological decompensation [Fatal]
  - Coma [Not Recovered/Not Resolved]
  - Renal failure [Not Recovered/Not Resolved]
  - Tumour lysis syndrome [Recovered/Resolved]

NARRATIVE: CASE EVENT DATE: 20231210
